FAERS Safety Report 13985665 (Version 1)
Quarter: 2017Q3

REPORT INFORMATION
  Report Type: Spontaneous
  Country: US (occurrence: US)
  Receive Date: 20170919
  Receipt Date: 20170919
  Transmission Date: 20171128
  Serious: No
  Sender: FDA-Public Use
  Company Number: PHEH2017US028386

PATIENT
  Sex: Female
  Weight: 62.59 kg

DRUGS (1)
  1. NEOMYCIN AND POLYMYXIN B SULFATES AND DEXAMETHASONE [Suspect]
     Active Substance: DEXAMETHASONE\NEOMYCIN SULFATE\POLYMYXIN B SULFATE
     Indication: HORDEOLUM
     Dosage: 1 GTT, UNK
     Route: 047
     Dates: start: 20170717, end: 20170720

REACTIONS (1)
  - Pharyngeal oedema [Not Recovered/Not Resolved]
